FAERS Safety Report 5810999-4 (Version None)
Quarter: 2008Q3

REPORT INFORMATION
  Report Type: 
  Country: None (occurrence: None)
  Receive Date: 20080716
  Receipt Date: 20080707
  Transmission Date: 20090109
  Serious: Yes (Hospitalization, Other)
  Sender: FDA-Public Use
  Company Number: US-BAYER-200812019BCC

PATIENT
  Age: 49 Year
  Sex: Female
  Weight: 104 kg

DRUGS (2)
  1. ALEVE (CAPLET) [Suspect]
     Indication: PAIN
     Dosage: TOTAL DAILY DOSE: 440 MG  UNIT DOSE: 220 MG
     Route: 048
     Dates: start: 20030101
  2. ALEVE (CAPLET) [Suspect]
     Dosage: TOTAL DAILY DOSE: 440 MG  UNIT DOSE: 220 MG
     Route: 048
     Dates: start: 20030101

REACTIONS (5)
  - ANAPHYLACTIC SHOCK [None]
  - DYSPNOEA [None]
  - HYPERSENSITIVITY [None]
  - OROPHARYNGEAL DISCOMFORT [None]
  - URTICARIA [None]
